FAERS Safety Report 14154583 (Version 2)
Quarter: 2017Q4

REPORT INFORMATION
  Report Type: Spontaneous
  Country: US (occurrence: US)
  Receive Date: 20171102
  Receipt Date: 20171108
  Transmission Date: 20180321
  Serious: No
  Sender: FDA-Public Use
  Company Number: US-PFIZER INC-2017469520

PATIENT
  Age: 84 Year
  Sex: Female
  Weight: 58.96 kg

DRUGS (2)
  1. CELECOXIB. [Suspect]
     Active Substance: CELECOXIB
     Indication: ARTHRITIS
     Dosage: 200 MG, 2X/DAY (200 IN THE MORNING AND 200 IN NIGHT)
  2. TYLENOL [Concomitant]
     Active Substance: ACETAMINOPHEN
     Indication: PAIN
     Dosage: 2 DF, DAILY (SHE TAKES ONE IN THE MORNING AND ONE AT NIGHT)

REACTIONS (1)
  - Drug ineffective [Unknown]
